FAERS Safety Report 7152852-2 (Version None)
Quarter: 2010Q4

REPORT INFORMATION
  Report Type: 
  Country: None (occurrence: None)
  Receive Date: 20101213
  Receipt Date: 20101207
  Transmission Date: 20110411
  Serious: Yes (Life-Threatening, Hospitalization)
  Sender: FDA-Public Use
  Company Number: PHHY2010US64104

PATIENT
  Age: 43 Year
  Sex: Female

DRUGS (4)
  1. FANAPT [Suspect]
     Indication: SCHIZOPHRENIA
     Dosage: 6 MG, BID
     Dates: end: 20100828
  2. TESTOSTERONE [Concomitant]
     Dosage: 100 ML, UNK
  3. WARFARIN SODIUM [Concomitant]
     Dosage: UNK
     Dates: end: 20100824
  4. CLONOPIN [Concomitant]
     Dosage: 2 MG, BID

REACTIONS (2)
  - IMPULSE-CONTROL DISORDER [None]
  - PULMONARY EMBOLISM [None]
